FAERS Safety Report 16106880 (Version 1)
Quarter: 2019Q1

REPORT INFORMATION
  Report Type: Spontaneous
  Country: US (occurrence: US)
  Receive Date: 20190322
  Receipt Date: 20190322
  Transmission Date: 20190418
  Serious: No
  Sender: FDA-Public Use
  Company Number: US-SUNOVION-2019SUN001131

PATIENT
  Sex: Male
  Weight: 79.37 kg

DRUGS (9)
  1. METOPROLOL. [Concomitant]
     Active Substance: METOPROLOL
     Indication: BLOOD PRESSURE ABNORMAL
     Dosage: 75 MG, QD
  2. LATUDA [Suspect]
     Active Substance: LURASIDONE HYDROCHLORIDE
     Dosage: 40 MG, QD
     Route: 048
     Dates: start: 20190302
  3. DEPAKOTE [Concomitant]
     Active Substance: DIVALPROEX SODIUM
     Dosage: 500 MG, HS
  4. GABAPENTINA PD [Concomitant]
     Dosage: 600 MG, QD
  5. DOXEPIN [Concomitant]
     Active Substance: DOXEPIN
     Indication: SLEEP DISORDER
     Dosage: 50 MG, HS
  6. LATUDA [Suspect]
     Active Substance: LURASIDONE HYDROCHLORIDE
     Dosage: 20 MG, QD
     Route: 048
     Dates: start: 20190301
  7. WELLBUTRIN [Concomitant]
     Active Substance: BUPROPION HYDROCHLORIDE
     Dosage: 150 MG, HS
  8. LATUDA [Suspect]
     Active Substance: LURASIDONE HYDROCHLORIDE
     Indication: PRODUCT USED FOR UNKNOWN INDICATION
     Dosage: 20 MG, QD
     Route: 048
     Dates: end: 20190314
  9. OMEPRAZOLE. [Concomitant]
     Active Substance: OMEPRAZOLE
     Indication: GASTRITIS
     Dosage: 40 MG, QD

REACTIONS (9)
  - Anger [Not Recovered/Not Resolved]
  - Tremor [Not Recovered/Not Resolved]
  - Disturbance in attention [Not Recovered/Not Resolved]
  - Fear [Not Recovered/Not Resolved]
  - Product dose omission [Unknown]
  - Nervousness [Recovering/Resolving]
  - Therapeutic response shortened [Unknown]
  - Agitation [Not Recovered/Not Resolved]
  - Palpitations [Not Recovered/Not Resolved]
